FAERS Safety Report 11309539 (Version 1)
Quarter: 2015Q3

REPORT INFORMATION
  Report Type: Spontaneous
  Country: US (occurrence: US)
  Receive Date: 20150724
  Receipt Date: 20150724
  Transmission Date: 20151125
  Serious: No
  Sender: FDA-Public Use
  Company Number: US-TOLMAR INC.-1040695

PATIENT
  Age: 68 Year
  Sex: Female
  Weight: 55.46 kg

DRUGS (1)
  1. CALCIPOTRIENE CREAM, 0.005% [Suspect]
     Active Substance: CALCIPOTRIENE
     Indication: PSORIASIS
     Route: 061
     Dates: start: 201504, end: 20150430

REACTIONS (1)
  - Pruritus [Recovered/Resolved]

NARRATIVE: CASE EVENT DATE: 201504
